FAERS Safety Report 7359843-7 (Version None)
Quarter: 2011Q1

REPORT INFORMATION
  Report Type: 
  Country: None (occurrence: None)
  Receive Date: 20110307
  Receipt Date: 20110218
  Transmission Date: 20110831
  Serious: Yes (Hospitalization)
  Sender: FDA-Public Use
  Company Number: AUR-APL-2011-00613

PATIENT
  Age: 85 Year
  Sex: Female

DRUGS (5)
  1. PROTAPHANE [Concomitant]
  2. LEVOTHYROXINE SODIUM [Concomitant]
  3. GABAPENTIN [Suspect]
     Indication: PAIN
     Dosage: 300MG-BID-ORAL
     Route: 048
     Dates: start: 20110112, end: 20110116
  4. ACTRAPID [Concomitant]
  5. QUERTO [Concomitant]

REACTIONS (14)
  - HYPOTENSION [None]
  - HAEMOGLOBIN DECREASED [None]
  - HAEMATOCRIT DECREASED [None]
  - GLYCOSYLATED HAEMOGLOBIN INCREASED [None]
  - HYPOPHAGIA [None]
  - PROTHROMBIN TIME PROLONGED [None]
  - BLOOD CALCIUM DECREASED [None]
  - DEHYDRATION [None]
  - DISTURBANCE IN ATTENTION [None]
  - BLOOD POTASSIUM INCREASED [None]
  - URINARY TRACT INFECTION [None]
  - BLOOD CREATINE INCREASED [None]
  - SOMNOLENCE [None]
  - BLOOD UREA INCREASED [None]
